FAERS Safety Report 9914456 (Version 2)
Quarter: 2014Q1

REPORT INFORMATION
  Report Type: Spontaneous
  Country: FR (occurrence: FR)
  Receive Date: 20140220
  Receipt Date: 20140318
  Transmission Date: 20141002
  Serious: Yes (Life-Threatening, Hospitalization, Other)
  Sender: FDA-Public Use
  Company Number: FR-PFIZER INC-2014047318

PATIENT
  Age: 63 Year
  Sex: Male

DRUGS (8)
  1. ATENOLOL [Suspect]
     Dosage: 100 MG, DAILY
     Route: 048
  2. METFORMIN HCL [Suspect]
     Indication: TYPE 2 DIABETES MELLITUS
     Dosage: 500 MG, 3X/DAY
     Route: 048
  3. METFORMIN HCL [Suspect]
     Dosage: 1000 MG, 3X/DAY
     Route: 048
     Dates: start: 20131116, end: 20131124
  4. AMAREL [Suspect]
     Indication: TYPE 2 DIABETES MELLITUS
     Dosage: 4 MG, DAILY
     Route: 048
     Dates: start: 20131114, end: 20131124
  5. ONGLYZA [Suspect]
     Indication: TYPE 2 DIABETES MELLITUS
     Dosage: 5 MG, DAILY
     Route: 048
     Dates: start: 20131114, end: 20131124
  6. OFLOCET [Suspect]
     Indication: PROSTATITIS
     Dosage: 200 MG, 2X/DAY
     Route: 065
     Dates: start: 20131115, end: 20131201
  7. INEXIUM /01479302/ [Concomitant]
     Dosage: 20 MG, DAILY
     Route: 048
  8. LIPANTHYL [Concomitant]
     Dosage: 200 MG, DAILY
     Route: 048

REACTIONS (2)
  - Incorrect dose administered [Recovered/Resolved]
  - Hypoglycaemic coma [Not Recovered/Not Resolved]
